FAERS Safety Report 6301421-2 (Version None)
Quarter: 2009Q3

REPORT INFORMATION
  Report Type: 
  Country: None (occurrence: None)
  Receive Date: 20090807
  Receipt Date: 20090729
  Transmission Date: 20100115
  Serious: Yes (Hospitalization)
  Sender: FDA-Public Use
  Company Number: IT-ABBOTT-09P-083-0587965-00

PATIENT
  Sex: Female

DRUGS (3)
  1. KLACID [Suspect]
     Indication: PYREXIA
     Route: 048
     Dates: start: 20090715, end: 20090717
  2. ISOCEF [Suspect]
     Indication: PYREXIA
     Dates: start: 20090715, end: 20090717
  3. APROVEL [Concomitant]
     Indication: DRUG USE FOR UNKNOWN INDICATION

REACTIONS (3)
  - FACE OEDEMA [None]
  - HEPATITIS ACUTE [None]
  - MUCOSAL INFLAMMATION [None]
